FAERS Safety Report 19546411 (Version 1)
Quarter: 2021Q3

REPORT INFORMATION
  Report Type: Spontaneous
  Country: DE (occurrence: DE)
  Receive Date: 20210714
  Receipt Date: 20210714
  Transmission Date: 20211014
  Serious: Yes (Other)
  Sender: FDA-Public Use
  Company Number: DE-AUROBINDO-AUR-APL-2021-029829

PATIENT
  Sex: Male

DRUGS (1)
  1. VALSARTAN FILM?COATED TABLET [Suspect]
     Active Substance: VALSARTAN
     Indication: PRODUCT USED FOR UNKNOWN INDICATION
     Dosage: 320 MILLIGRAM, ONCE A DAY
     Route: 065

REACTIONS (10)
  - Impaired quality of life [Unknown]
  - Mental impairment [Unknown]
  - Anxiety disorder [Unknown]
  - Sleep disorder [Unknown]
  - Nightmare [Unknown]
  - Fatigue [Unknown]
  - Fear of disease [Unknown]
  - Dyspnoea [Unknown]
  - Hyperhidrosis [Unknown]
  - Nervousness [Unknown]
